FAERS Safety Report 6410553-X (Version None)
Quarter: 2009Q4

REPORT INFORMATION
  Report Type: 
  Country: None (occurrence: None)
  Receive Date: 20091021
  Receipt Date: 20091021
  Transmission Date: 20100525
  Serious: Yes (Hospitalization)
  Sender: FDA-Public Use
  Company Number: None

PATIENT
  Age: 63 Year
  Sex: Male

DRUGS (1)
  1. TRIMETHOPRIM-SULFAMETHOXAZOLE [Suspect]
     Indication: URINARY TRACT INFECTION STAPHYLOCOCCAL
     Dosage: 1 TAB BID PO
     Route: 048
     Dates: start: 20090629, end: 20090702

REACTIONS (6)
  - ASTHENIA [None]
  - CONFUSIONAL STATE [None]
  - DIZZINESS [None]
  - FEELING ABNORMAL [None]
  - PYREXIA [None]
  - UNEVALUABLE EVENT [None]
